FAERS Safety Report 13557497 (Version 1)
Quarter: 2017Q2

REPORT INFORMATION
  Report Type: Spontaneous
  Country: AU (occurrence: AU)
  Receive Date: 20170517
  Receipt Date: 20170517
  Transmission Date: 20170830
  Serious: Yes (Hospitalization, Other)
  Sender: FDA-Public Use
  Company Number: AU-IMPAX LABORATORIES, INC-2017-IPXL-01311

PATIENT
  Age: 30 Year
  Sex: Male

DRUGS (1)
  1. PHENYTOIN CHEWABLE [Suspect]
     Active Substance: PHENYTOIN
     Indication: PRODUCT USED FOR UNKNOWN INDICATION
     Dosage: UPTO 20 G, SINGLE
     Route: 048

REACTIONS (7)
  - Toxicity to various agents [Unknown]
  - Ileus [Unknown]
  - Dysarthria [Unknown]
  - Coma [Unknown]
  - Intentional overdose [Unknown]
  - Nystagmus [Unknown]
  - Ataxia [Unknown]
